FAERS Safety Report 5120874-9 (Version None)
Quarter: 2006Q4

REPORT INFORMATION
  Report Type: 
  Country: None (occurrence: None)
  Receive Date: 20061005
  Receipt Date: 20060925
  Transmission Date: 20070319
  Serious: Yes (Hospitalization, Other)
  Sender: FDA-Public Use
  Company Number: BR-BAYER-200614285GDS

PATIENT
  Age: 53 Year
  Sex: Female
  Weight: 65 kg

DRUGS (5)
  1. CIPRO [Suspect]
     Indication: HELICOBACTER INFECTION
     Dosage: UNIT DOSE: 500 MG
     Route: 048
     Dates: start: 20060803, end: 20060810
  2. PANTOPRAZOLE SODIUM [Concomitant]
     Indication: PROPHYLAXIS AGAINST GASTROINTESTINAL ULCER
     Dosage: UNIT DOSE: 40 MG
     Route: 048
     Dates: start: 20060803
  3. PANTOPRAZOLE SODIUM [Concomitant]
     Dosage: UNIT DOSE: 40 MG
     Route: 048
  4. FLAGYL [Concomitant]
     Indication: ABDOMINAL PAIN UPPER
     Dosage: UNIT DOSE: 400 MG
     Route: 048
     Dates: start: 20060803, end: 20060810
  5. MICARDIS [Concomitant]
     Indication: HYPERTENSION
     Route: 048
     Dates: start: 20060101

REACTIONS (15)
  - BLISTER [None]
  - DIARRHOEA [None]
  - DYSPNOEA [None]
  - FACE OEDEMA [None]
  - HYPERTENSION [None]
  - LABILE BLOOD PRESSURE [None]
  - OPEN WOUND [None]
  - PAIN [None]
  - PRURITUS [None]
  - PYREXIA [None]
  - RASH [None]
  - RASH GENERALISED [None]
  - SINUS HEADACHE [None]
  - SKIN EXFOLIATION [None]
  - VASCULITIS [None]
